FAERS Safety Report 4764258-1 (Version None)
Quarter: 2005Q3

REPORT INFORMATION
  Report Type: 
  Country: None (occurrence: None)
  Receive Date: 20050907
  Receipt Date: 20050907
  Transmission Date: 20060218
  Serious: Yes (Hospitalization)
  Sender: FDA-Public Use
  Company Number: None

PATIENT
  Age: 48 Year
  Sex: Male
  Weight: 93.441 kg

DRUGS (7)
  1. DOCETAXEL [Suspect]
     Indication: PANCREATIC CARCINOMA METASTATIC
     Dosage: 160 MILLIGRAMS EVERY 21 DAYS IV DRIP
     Route: 041
     Dates: start: 20050816, end: 20050816
  2. REVLIMID [Suspect]
     Dosage: 5 MILLOGRAMS DAILY FOR 14 DAYS PO
     Route: 048
     Dates: start: 20050816, end: 20050829
  3. CARDIZEM [Concomitant]
  4. TRIAMTERENE AND HYDROCHLOROTHIAZIDE [Concomitant]
  5. TRAZODONE HCL [Concomitant]
  6. OXYCODONE HCL [Concomitant]
  7. DLAUDID [Concomitant]

REACTIONS (3)
  - COLLAPSE OF LUNG [None]
  - DISEASE PROGRESSION [None]
  - PLEURAL EFFUSION [None]
